FAERS Safety Report 10484299 (Version 3)
Quarter: 2014Q4

REPORT INFORMATION
  Report Type: Report from Study
  Country: US (occurrence: US)
  Receive Date: 20140930
  Receipt Date: 20141010
  Transmission Date: 20150528
  Serious: Yes (Death, Hospitalization)
  Sender: FDA-Public Use
  Company Number: US-ACTELION-A-US2013-89043

PATIENT
  Age: 50 Year
  Sex: Male

DRUGS (26)
  1. TRACLEER [Suspect]
     Active Substance: BOSENTAN\BOSENTAN MONOHYDRATE
     Indication: PULMONARY ARTERIAL HYPERTENSION
     Dosage: 125 MG, BID
     Route: 048
     Dates: start: 200101, end: 20140918
  2. SILDENAFIL. [Concomitant]
     Active Substance: SILDENAFIL
  3. COUMADIN [Concomitant]
     Active Substance: WARFARIN SODIUM
  4. ASA [Concomitant]
     Active Substance: ASPIRIN
  5. LIDOCAIN [Concomitant]
  6. DOCUSATE [Concomitant]
     Active Substance: DOCUSATE
  7. ACIDOPHILUS [Concomitant]
     Active Substance: LACTOBACILLUS ACIDOPHILUS
  8. ESOMEPRAZOLE [Concomitant]
     Active Substance: ESOMEPRAZOLE
  9. TAMSULOSIN [Concomitant]
     Active Substance: TAMSULOSIN
  10. POTASSIUM [Concomitant]
     Active Substance: POTASSIUM
  11. DIGITALIS [Concomitant]
     Active Substance: DIGITALIS
  12. CYCLOBENZAPRINE [Concomitant]
     Active Substance: CYCLOBENZAPRINE
  13. SENNA [Concomitant]
     Active Substance: SENNA LEAF\SENNOSIDES\SENNOSIDES A AND B
  14. FUROSEMIDE. [Concomitant]
     Active Substance: FUROSEMIDE
  15. AMLODIPINE [Concomitant]
     Active Substance: AMLODIPINE BESYLATE
  16. CELEBREX [Concomitant]
     Active Substance: CELECOXIB
  17. MULTIVITAMIN [Concomitant]
     Active Substance: VITAMINS
  18. TRACLEER [Suspect]
     Active Substance: BOSENTAN\BOSENTAN MONOHYDRATE
     Dosage: 62.5 MG, BID
     Route: 048
     Dates: start: 200201, end: 200202
  19. TRAMADOL [Concomitant]
     Active Substance: TRAMADOL
  20. CALCIUM [Concomitant]
     Active Substance: CALCIUM
  21. AMIODARONE [Concomitant]
     Active Substance: AMIODARONE
  22. TREPROSTINIL [Concomitant]
     Active Substance: TREPROSTINIL
  23. IRON [Concomitant]
     Active Substance: IRON
  24. ENALAPRIL [Concomitant]
     Active Substance: ENALAPRIL
  25. HYDROCODONE BIT/APAP [Concomitant]
     Active Substance: ACETAMINOPHEN\HYDROCODONE BITARTRATE
  26. ZANAFLEX [Concomitant]
     Active Substance: TIZANIDINE HYDROCHLORIDE

REACTIONS (12)
  - Dyspnoea [Recovered/Resolved]
  - Cardiac failure acute [Fatal]
  - Atrial fibrillation [Recovered/Resolved]
  - Acute right ventricular failure [Recovered/Resolved]
  - Tachycardia [Fatal]
  - Oedema [Fatal]
  - Oxygen saturation decreased [Fatal]
  - Atrioventricular block complete [Unknown]
  - Fluid overload [Recovered/Resolved]
  - Atrial flutter [Fatal]
  - Waist circumference increased [Recovered/Resolved]
  - Palpitations [Recovered/Resolved]

NARRATIVE: CASE EVENT DATE: 20130721
